FAERS Safety Report 25347252 (Version 1)
Quarter: 2025Q2

REPORT INFORMATION
  Report Type: Report from Study
  Country: US (occurrence: US)
  Receive Date: 20250522
  Receipt Date: 20250522
  Transmission Date: 20250717
  Serious: Yes (Hospitalization, Other)
  Sender: GILEAD
  Company Number: US-GILEAD-2025-0714192

PATIENT
  Age: 73 Year
  Sex: Female

DRUGS (24)
  1. AMBRISENTAN [Suspect]
     Active Substance: AMBRISENTAN
     Indication: Pulmonary arterial hypertension
     Dosage: 10MG TAB: TAKE 1 TABLET BY MOUTH EVERY DAY
     Route: 048
     Dates: start: 20250223, end: 202502
  2. ORENITRAM [Concomitant]
     Active Substance: TREPROSTINIL
  3. PYRIDOSTIGMINE [Concomitant]
     Active Substance: PYRIDOSTIGMINE
  4. TRIAMCINOLON COMPO [Concomitant]
  5. LOSARTAN [Concomitant]
     Active Substance: LOSARTAN
  6. POTASSIUM CHLORIDE [Concomitant]
     Active Substance: POTASSIUM CHLORIDE
  7. TEMAZEPAM [Concomitant]
     Active Substance: TEMAZEPAM
  8. FUROSEMIDE [Concomitant]
     Active Substance: FUROSEMIDE
  9. VENLAFAXINE [Concomitant]
     Active Substance: VENLAFAXINE HYDROCHLORIDE
  10. LITHIUM CARBONATE [Concomitant]
     Active Substance: LITHIUM CARBONATE
  11. CLONAZEPAM [Concomitant]
     Active Substance: CLONAZEPAM
  12. PROPRANOLOL [Concomitant]
     Active Substance: PROPRANOLOL HYDROCHLORIDE
  13. ELIQUIS [Concomitant]
     Active Substance: APIXABAN
  14. PANTOPRAZOLE [Concomitant]
     Active Substance: PANTOPRAZOLE
  15. ALBUTEROL SULFATE [Concomitant]
     Active Substance: ALBUTEROL SULFATE
  16. TADALAFIL [Concomitant]
     Active Substance: TADALAFIL
  17. DEPAKOTE [Concomitant]
     Active Substance: DIVALPROEX SODIUM
  18. RISPERIDONE [Concomitant]
     Active Substance: RISPERIDONE
  19. FLUTICASONE [Concomitant]
     Active Substance: FLUTICASONE
  20. AMFETAMINE SULFATE;DEXAMFETAMINE [Concomitant]
  21. SYMBICORT [Concomitant]
     Active Substance: BUDESONIDE\FORMOTEROL FUMARATE DIHYDRATE
  22. ONDANSETRON [Concomitant]
     Active Substance: ONDANSETRON
  23. PREDNISONE [Concomitant]
     Active Substance: PREDNISONE
  24. MONTELUKAST [Concomitant]
     Active Substance: MONTELUKAST

REACTIONS (2)
  - Pneumonia [Not Recovered/Not Resolved]
  - Viral infection [Not Recovered/Not Resolved]

NARRATIVE: CASE EVENT DATE: 20250421
